FAERS Safety Report 11109156 (Version 1)
Quarter: 2015Q2

REPORT INFORMATION
  Report Type: Spontaneous
  Country: US (occurrence: None)
  Receive Date: 20150511
  Receipt Date: 20150511
  Transmission Date: 20150821
  Serious: Yes (Other)
  Sender: FDA-Public Use
  Company Number: DEP_02781_2015

PATIENT
  Age: 16 Year
  Sex: Male

DRUGS (1)
  1. NUCYNTA ER [Suspect]
     Active Substance: TAPENTADOL HYDROCHLORIDE
     Indication: PRODUCT USED FOR UNKNOWN INDICATION
     Dosage: DF
     Dates: start: 20141120

REACTIONS (5)
  - Drug abuse [None]
  - Toxicity to various agents [None]
  - Feeling abnormal [None]
  - Ataxia [None]
  - Dysarthria [None]

NARRATIVE: CASE EVENT DATE: 20141120
